FAERS Safety Report 18075759 (Version 1)
Quarter: 2020Q3

REPORT INFORMATION
  Report Type: Spontaneous
  Country: US (occurrence: US)
  Receive Date: 20200727
  Receipt Date: 20200727
  Transmission Date: 20201103
  Serious: No
  Sender: FDA-Public Use
  Company Number: US-ABBVIE-20K-163-3322940-00

PATIENT
  Sex: Female

DRUGS (2)
  1. LEVOTHYROXINE. [Suspect]
     Active Substance: LEVOTHYROXINE
     Indication: CONGENITAL HYPOTHYROIDISM
     Route: 048
  2. SYNTHROID [Suspect]
     Active Substance: LEVOTHYROXINE SODIUM
     Indication: CONGENITAL HYPOTHYROIDISM
     Route: 048

REACTIONS (6)
  - Hypothyroidism [Unknown]
  - Feeling abnormal [Unknown]
  - Hair texture abnormal [Unknown]
  - Abdominal discomfort [Unknown]
  - Skin discolouration [Unknown]
  - Constipation [Unknown]
